FAERS Safety Report 4662600-3 (Version None)
Quarter: 2005Q2

REPORT INFORMATION
  Report Type: 
  Country: None (occurrence: None)
  Receive Date: 20050516
  Receipt Date: 20050114
  Transmission Date: 20051028
  Serious: Yes (Death)
  Sender: FDA-Public Use
  Company Number: 2005GB00098

PATIENT
  Age: 72 Year
  Sex: Female

DRUGS (6)
  1. PLENDIL [Suspect]
     Route: 048
     Dates: end: 20040506
  2. ATENOLOL [Concomitant]
  3. GYNEST [Concomitant]
  4. PERINDOPRIL [Concomitant]
  5. PANTOPRAZOLE SODIUM [Concomitant]
  6. FOSAMAX [Concomitant]

REACTIONS (1)
  - MYOCARDIAL ISCHAEMIA [None]
